FAERS Safety Report 25277938 (Version 1)
Quarter: 2025Q2

REPORT INFORMATION
  Report Type: Spontaneous
  Country: US (occurrence: None)
  Receive Date: 20250506
  Receipt Date: 20250506
  Transmission Date: 20250717
  Serious: Yes (unspecified)
  Sender: FDA-CTU
  Company Number: None

PATIENT
  Age: 42 Year
  Sex: Female
  Weight: 58.5 kg

DRUGS (32)
  1. AMIKACIN [Suspect]
     Active Substance: AMIKACIN
     Indication: Vascular device infection
     Dosage: FREQUENCY : DAILY;?
     Route: 042
     Dates: start: 20250419, end: 20250501
  2. AMIKACIN [Suspect]
     Active Substance: AMIKACIN
     Indication: Sepsis
  3. CLOBAZAM [Concomitant]
     Active Substance: CLOBAZAM
  4. NORCO [Concomitant]
     Active Substance: ACETAMINOPHEN\HYDROCODONE BITARTRATE
  5. AMITRIPTYLINE [Concomitant]
     Active Substance: AMITRIPTYLINE
  6. ZOFRAN [Concomitant]
     Active Substance: ONDANSETRON HYDROCHLORIDE
  7. SODIUM CHLORIDE [Concomitant]
     Active Substance: SODIUM CHLORIDE
  8. ZYRTEC [Concomitant]
     Active Substance: CETIRIZINE HYDROCHLORIDE
  9. SINGULAIR [Concomitant]
     Active Substance: MONTELUKAST SODIUM
  10. LOSARTAN [Concomitant]
     Active Substance: LOSARTAN
  11. ROBAXIN [Concomitant]
     Active Substance: METHOCARBAMOL
  12. MECLIZINE [Concomitant]
     Active Substance: MECLIZINE HYDROCHLORIDE
  13. PEPCID [Concomitant]
     Active Substance: FAMOTIDINE
  14. UNSPECIFIED INGREDIENT [Concomitant]
     Active Substance: UNSPECIFIED INGREDIENT
  15. SCOPOLAMINE [Concomitant]
     Active Substance: SCOPOLAMINE
  16. NURTEC ODT [Concomitant]
     Active Substance: RIMEGEPANT SULFATE
  17. immitrex [Concomitant]
  18. VITAMIN B12 [Concomitant]
     Active Substance: CYANOCOBALAMIN
  19. FERROUS SULFATE [Concomitant]
     Active Substance: FERROUS SULFATE
  20. VITAMIN D3 [Concomitant]
     Active Substance: CHOLECALCIFEROL
  21. BENADRYL [Concomitant]
     Active Substance: DIPHENHYDRAMINE HYDROCHLORIDE
  22. nayazilam [Concomitant]
  23. DIETARY SUPPLEMENT [Concomitant]
     Active Substance: DIETARY SUPPLEMENT
  24. SALINE [Concomitant]
     Active Substance: SODIUM CHLORIDE
  25. micafungen [Concomitant]
  26. FOLATE SODIUM [Concomitant]
     Active Substance: FOLATE SODIUM
  27. QUERCETIN [Concomitant]
     Active Substance: QUERCETIN
  28. ALPHA LIPOIC ACID [Concomitant]
     Active Substance: .ALPHA.-LIPOIC ACID
  29. HERBALS\TURMERIC [Concomitant]
     Active Substance: HERBALS\TURMERIC
  30. MELATONIN [Concomitant]
     Active Substance: MELATONIN
  31. IBUPROFEN [Concomitant]
     Active Substance: IBUPROFEN
  32. TYLENOL [Concomitant]
     Active Substance: ACETAMINOPHEN

REACTIONS (13)
  - Physical product label issue [None]
  - Product dispensing error [None]
  - Incorrect dose administered [None]
  - Inappropriate schedule of product administration [None]
  - Incorrect dose administered [None]
  - Stress [None]
  - Anxiety [None]
  - Tinnitus [None]
  - Vertigo [None]
  - Spinal disorder [None]
  - Ototoxicity [None]
  - Toxicity to various agents [None]
  - Inappropriate antidiuretic hormone secretion [None]

NARRATIVE: CASE EVENT DATE: 20250419
